FAERS Safety Report 9136308 (Version 1)
Quarter: 2013Q1

REPORT INFORMATION
  Report Type: Spontaneous
  Country: US (occurrence: US)
  Receive Date: 20130304
  Receipt Date: 20130304
  Transmission Date: 20140127
  Serious: No
  Sender: FDA-Public Use
  Company Number: US-ABBOTT-12P-163-0928453-00

PATIENT
  Age: 64 Year
  Sex: Male
  Weight: 77.18 kg

DRUGS (6)
  1. ANDROGEL 1% [Suspect]
     Indication: BLOOD TESTOSTERONE DECREASED
     Dosage: 4 PUMPS
     Dates: start: 201112
  2. ANDROGEL 1% [Suspect]
     Dosage: 3 PUMPS
  3. UNKNOWN MEDICATION [Concomitant]
     Indication: BLOOD PRESSURE
  4. UNKNOWN MEDICATION [Concomitant]
     Indication: BLOOD CHOLESTEROL
  5. ASPIRIN [Concomitant]
     Indication: PRODUCT USED FOR UNKNOWN INDICATION
  6. UNKNOWN MEDICATION [Concomitant]
     Indication: OSTEOPOROSIS

REACTIONS (5)
  - Groin pain [Unknown]
  - Arthralgia [Unknown]
  - Intervertebral disc protrusion [Unknown]
  - Blood testosterone increased [Unknown]
  - Sperm concentration decreased [Unknown]
